FAERS Safety Report 25682025 (Version 3)
Quarter: 2025Q4

REPORT INFORMATION
  Report Type: Spontaneous
  Country: US (occurrence: US)
  Receive Date: 20250814
  Receipt Date: 20251126
  Transmission Date: 20260117
  Serious: No
  Sender: GLAUKOS
  Company Number: US-GLK-000667

PATIENT
  Sex: Female

DRUGS (1)
  1. IDOSE TR [Suspect]
     Active Substance: TRAVOPROST
     Indication: Product used for unknown indication
     Dosage: LEFT EYE (OS)
     Route: 047

REACTIONS (3)
  - Drug ineffective [Not Recovered/Not Resolved]
  - Intraocular pressure increased [Not Recovered/Not Resolved]
  - Medical device removal [Unknown]

NARRATIVE: CASE EVENT DATE: 20251113
